FAERS Safety Report 18291585 (Version 17)
Quarter: 2024Q1

REPORT INFORMATION
  Report Type: Spontaneous
  Country: AT (occurrence: AT)
  Receive Date: 20200921
  Receipt Date: 20240318
  Transmission Date: 20240410
  Serious: Yes (Hospitalization, Other)
  Sender: FDA-Public Use
  Company Number: NVSC2020AT251665

PATIENT
  Age: 65 Year
  Sex: Female
  Weight: 80.4 kg

DRUGS (128)
  1. TYKERB [Suspect]
     Active Substance: LAPATINIB DITOSYLATE
     Indication: Breast cancer metastatic
     Dosage: 1250 MG, QD
     Route: 048
     Dates: start: 20191002, end: 20200107
  2. TYKERB [Suspect]
     Active Substance: LAPATINIB DITOSYLATE
     Dosage: 1000 MG, QD
     Route: 048
     Dates: start: 20200108, end: 20200421
  3. VINORELBINE [Suspect]
     Active Substance: VINORELBINE TARTRATE
     Indication: Breast cancer metastatic
     Dosage: 45 MG, TIW
     Route: 042
     Dates: start: 20200422, end: 20200722
  4. FULVESTRANT [Suspect]
     Active Substance: FULVESTRANT
     Indication: Breast cancer metastatic
     Dosage: 500 MG, (0.5 WEEK MOST RECENT DOSE)
     Route: 030
     Dates: start: 20171002, end: 20171115
  5. FULVESTRANT [Suspect]
     Active Substance: FULVESTRANT
     Dosage: 500 MG
     Route: 030
     Dates: start: 20171116, end: 20191001
  6. DOCETAXEL [Suspect]
     Active Substance: DOCETAXEL\DOCETAXEL ANHYDROUS
     Indication: Breast cancer metastatic
     Dosage: 570 MG, Q3W (MOST RECENT DOSE PRIOR TO THE EVENTS: 09 JUN 2017  )
     Route: 042
     Dates: start: 20170224, end: 20170317
  7. DOCETAXEL [Suspect]
     Active Substance: DOCETAXEL\DOCETAXEL ANHYDROUS
     Dosage: 180 MG, Q3W
     Route: 042
     Dates: start: 20170609, end: 20170630
  8. DOCETAXEL [Suspect]
     Active Substance: DOCETAXEL\DOCETAXEL ANHYDROUS
     Dosage: UNK
     Route: 042
     Dates: start: 20170519, end: 20170519
  9. DOCETAXEL [Suspect]
     Active Substance: DOCETAXEL\DOCETAXEL ANHYDROUS
     Dosage: 134.25 MG
     Route: 042
     Dates: start: 20210317, end: 20210428
  10. DOCETAXEL [Suspect]
     Active Substance: DOCETAXEL\DOCETAXEL ANHYDROUS
     Dosage: 175 MG, IN 17 DAYS
     Route: 065
     Dates: start: 20170410, end: 20170427
  11. DOCETAXEL [Suspect]
     Active Substance: DOCETAXEL\DOCETAXEL ANHYDROUS
     Dosage: 190 MG, Q3W (MOST RECENT DOSE PRIOR TO THE EVENTS: 09 JUN 2017  )
     Route: 042
     Dates: start: 20170224, end: 20170317
  12. CAPECITABINE [Suspect]
     Active Substance: CAPECITABINE
     Indication: Breast cancer metastatic
     Dosage: 3500 MG, QD (MOST RECENT DOSE PRIOR TO THE EVENT LYMPH NODE METASTATIS AXILLA AND PORT A CATH INFECT
     Route: 048
     Dates: start: 20191002, end: 20200107
  13. CAPECITABINE [Suspect]
     Active Substance: CAPECITABINE
     Dosage: 2000 MG (DAILY FOR 2 WEEKS THEN PAUSE FOR 1 WEEK)
     Route: 048
     Dates: start: 20201230, end: 20210203
  14. CAPECITABINE [Suspect]
     Active Substance: CAPECITABINE
     Dosage: 3500 MG
     Route: 048
     Dates: start: 20210210, end: 20210224
  15. CAPECITABINE [Suspect]
     Active Substance: CAPECITABINE
     Dosage: 3000 MG, QD
     Route: 048
     Dates: start: 20200108, end: 20200421
  16. ADO-TRASTUZUMAB EMTANSINE [Suspect]
     Active Substance: ADO-TRASTUZUMAB EMTANSINE
     Indication: Breast cancer metastatic
     Dosage: 270 MG, TIW
     Route: 042
     Dates: start: 20190306, end: 20190909
  17. ADO-TRASTUZUMAB EMTANSINE [Suspect]
     Active Substance: ADO-TRASTUZUMAB EMTANSINE
     Indication: Breast cancer metastatic
     Dosage: 270 MG, TIW
     Route: 042
     Dates: start: 20190306, end: 20190909
  18. TRASTUZUMAB [Suspect]
     Active Substance: TRASTUZUMAB
     Indication: Breast cancer metastatic
     Dosage: 624 MG,QD (MOST RECENT DOSE PRIOR TO THE EVENTS: 10/AUG/2017)
     Route: 042
     Dates: start: 20170224, end: 20170224
  19. TRASTUZUMAB [Suspect]
     Active Substance: TRASTUZUMAB
     Indication: Breast cancer metastatic
     Dosage: UNK
     Route: 042
     Dates: start: 20170720, end: 20170720
  20. TRASTUZUMAB [Suspect]
     Active Substance: TRASTUZUMAB
     Dosage: 390 MG, IN 17 DAYS
     Route: 042
     Dates: start: 20170410, end: 20170427
  21. TRASTUZUMAB [Suspect]
     Active Substance: TRASTUZUMAB
     Dosage: 560 MG, Q3W
     Route: 042
     Dates: start: 20201230, end: 20210210
  22. TRASTUZUMAB [Suspect]
     Active Substance: TRASTUZUMAB
     Dosage: 432 MG
     Route: 042
     Dates: start: 20170519, end: 20170519
  23. TRASTUZUMAB [Suspect]
     Active Substance: TRASTUZUMAB
     Dosage: 462 MG
     Route: 042
     Dates: start: 20170810, end: 20190213
  24. TRASTUZUMAB [Suspect]
     Active Substance: TRASTUZUMAB
     Dosage: 414 MG
     Route: 042
     Dates: start: 20170609, end: 20170630
  25. TRASTUZUMAB [Suspect]
     Active Substance: TRASTUZUMAB
     Dosage: 540 MG
     Route: 042
     Dates: start: 20200422, end: 20200605
  26. XELODA [Suspect]
     Active Substance: CAPECITABINE
     Indication: Breast cancer metastatic
     Dosage: 3500 MG, QD (MOST RECENT DOSE PRIOR TO THE EVENT  PORT A CATH INFECTION: 08/JAN/2020)
     Route: 048
     Dates: start: 20191002, end: 20200107
  27. XELODA [Suspect]
     Active Substance: CAPECITABINE
     Indication: Breast cancer
     Dosage: 3000 MG, QD
     Route: 048
     Dates: start: 20200108, end: 20200421
  28. XELODA [Suspect]
     Active Substance: CAPECITABINE
     Indication: HER2 positive breast cancer
     Dosage: 2000 MG (OTHER DAILY FOR 2 WEEKS THEN PAUSE FOR 1 WEEK)
     Route: 042
     Dates: start: 20201230, end: 20210203
  29. PERTUZUMAB [Suspect]
     Active Substance: PERTUZUMAB
     Indication: Breast cancer metastatic
     Dosage: 840 MG, QD (MOST RECENT DOSE PRIOR TO THE EVENT WORSENING OF BRAIN METASTASES: 17/MAR/2017 MOST RECE
     Route: 042
     Dates: start: 20170224, end: 20170224
  30. PERTUZUMAB [Suspect]
     Active Substance: PERTUZUMAB
     Indication: Breast cancer metastatic
     Dosage: 840 MG, QD
     Route: 042
     Dates: start: 20170417, end: 20210428
  31. PERTUZUMAB [Suspect]
     Active Substance: PERTUZUMAB
     Dosage: 840 MG
     Route: 042
     Dates: start: 20200422, end: 20200615
  32. BLEOMYCIN [Suspect]
     Active Substance: BLEOMYCIN SULFATE
     Indication: Breast cancer metastatic
     Dosage: 26.85 MG, QD (DRUG WAS DISCONTINUED AS PLANNED NUMBER OF CYCLES COMPLETED)
     Route: 042
     Dates: start: 20200519, end: 20200519
  33. BLEOMYCIN [Suspect]
     Active Substance: BLEOMYCIN SULFATE
     Dosage: 1 DOSAGE FORM, QD (DRUG WAS DISCONTINUED AS PLANNED NUMBER OF CYCLES COMPLETED)
     Route: 042
     Dates: start: 20210105, end: 20210105
  34. FASLODEX [Suspect]
     Active Substance: FULVESTRANT
     Indication: HER2 positive breast cancer
     Dosage: 500 MG (MOST RECENT DOSE PRIOR TO THE EVENT PORT A CATH INFECTION: 16/NOV/2017)
     Route: 058
     Dates: start: 20171002, end: 20171115
  35. FASLODEX [Suspect]
     Active Substance: FULVESTRANT
     Dosage: 500 MG (MONTHLY)
     Route: 058
     Dates: start: 20171116, end: 20191001
  36. HERCEPTIN [Suspect]
     Active Substance: TRASTUZUMAB
     Indication: HER2 positive breast cancer
     Dosage: 624 MG, QD (MOST RECENT DOSE PRIOR TO THE EVENTS: 10/AUG/2017)
     Route: 042
     Dates: start: 20170224, end: 20170224
  37. HERCEPTIN [Suspect]
     Active Substance: TRASTUZUMAB
     Dosage: 462 MG, TIW
     Route: 042
     Dates: start: 20170810, end: 20190213
  38. HERCEPTIN [Suspect]
     Active Substance: TRASTUZUMAB
     Dosage: 432 MG, QD
     Route: 042
     Dates: start: 20170519, end: 20170519
  39. HERCEPTIN [Suspect]
     Active Substance: TRASTUZUMAB
     Dosage: 414 MG, TIW
     Route: 042
     Dates: start: 20170609, end: 20170630
  40. HERCEPTIN [Suspect]
     Active Substance: TRASTUZUMAB
     Dosage: 468 MG, QD
     Route: 042
     Dates: start: 20170720, end: 20170720
  41. HERCEPTIN [Suspect]
     Active Substance: TRASTUZUMAB
     Dosage: 390 MG
     Route: 042
     Dates: start: 20170410, end: 20170427
  42. NAVELBINE [Suspect]
     Active Substance: VINORELBINE TARTRATE
     Indication: Breast cancer metastatic
     Dosage: 45 MG, TIW
     Route: 042
     Dates: start: 20200422, end: 20200722
  43. TAXOTERE [Suspect]
     Active Substance: DOCETAXEL
     Indication: HER2 positive breast cancer
     Dosage: 183 MG, QD
     Route: 042
     Dates: start: 20170519, end: 20170519
  44. TAXOTERE [Suspect]
     Active Substance: DOCETAXEL
     Dosage: 175 MG
     Route: 042
     Dates: start: 20170410, end: 20170427
  45. TAXOTERE [Suspect]
     Active Substance: DOCETAXEL
     Dosage: 134.25 MG, TIW
     Route: 042
     Dates: start: 20210317, end: 20210428
  46. TAXOTERE [Suspect]
     Active Substance: DOCETAXEL
     Dosage: 180 MG, TIW
     Route: 042
     Dates: start: 20170609, end: 20170630
  47. TAXOTERE [Suspect]
     Active Substance: DOCETAXEL
     Dosage: 190 MG, TIW (MOST RECENT DOSE PRIOR TO THE EVENTS: 09/JUN/2017)
     Route: 042
     Dates: start: 20170224, end: 20170317
  48. PERJETA [Suspect]
     Active Substance: PERTUZUMAB
     Indication: HER2 positive breast cancer
     Dosage: 840 MG, QD (MOST RECENT DOSE PRIOR TO THE EVENT WORSENING OF BRAIN METASTASES: 17/MAR/2017MOST RECEN
     Route: 042
     Dates: start: 20170224, end: 20170224
  49. PERJETA [Suspect]
     Active Substance: PERTUZUMAB
     Dosage: 420 MG (MILIGRAMS OTHER FREQUENCY VARIED OVER TIME(FROM 3 WEEKS TO 24DAYS))
     Route: 042
     Dates: start: 20170317, end: 20190213
  50. PERJETA [Suspect]
     Active Substance: PERTUZUMAB
     Dosage: 840 MG, TIW
     Route: 042
     Dates: start: 20200422, end: 20200615
  51. KADCYLA [Suspect]
     Active Substance: ADO-TRASTUZUMAB EMTANSINE
     Indication: HER2 positive breast cancer
     Dosage: 270 MG, TIW
     Route: 042
     Dates: start: 20190306, end: 20190909
  52. DOXIL [Suspect]
     Active Substance: DOXORUBICIN HYDROCHLORIDE
     Indication: Breast cancer metastatic
     Dosage: UNK
     Route: 042
     Dates: start: 20210608, end: 20210608
  53. DENOSUMAB [Suspect]
     Active Substance: DENOSUMAB
     Indication: Breast cancer metastatic
     Dosage: 120 MG, Q4W
     Route: 042
     Dates: start: 20201230, end: 20210210
  54. TUCATINIB [Suspect]
     Active Substance: TUCATINIB
     Indication: Breast cancer metastatic
     Dosage: 300 MG, 0.5 QD
     Route: 048
     Dates: start: 20201230, end: 20210210
  55. LEUKICHTAN [Concomitant]
     Indication: Product used for unknown indication
     Dosage: UNK
     Route: 065
     Dates: start: 20200430, end: 20200515
  56. KALIORAL [Concomitant]
     Indication: Product used for unknown indication
     Dosage: UNK
     Route: 048
     Dates: start: 20200427, end: 20200428
  57. FUROSEMIDE [Concomitant]
     Active Substance: FUROSEMIDE
     Indication: Product used for unknown indication
     Dosage: UNK (ONGOING = NOT CHECKED)
     Route: 065
     Dates: start: 20170810, end: 20171213
  58. FUROSEMIDE [Concomitant]
     Active Substance: FUROSEMIDE
     Dosage: UNK
     Route: 065
     Dates: start: 20170611, end: 20170809
  59. FUROSEMIDE [Concomitant]
     Active Substance: FUROSEMIDE
     Dosage: ONGOING = NOT CHECKED
     Route: 065
     Dates: start: 20170810, end: 20171213
  60. FUROSEMIDE [Concomitant]
     Active Substance: FUROSEMIDE
     Route: 048
     Dates: start: 20170810, end: 20190212
  61. FUROSEMIDE [Concomitant]
     Active Substance: FUROSEMIDE
     Route: 048
     Dates: start: 20170713, end: 20170809
  62. EMEND [Concomitant]
     Active Substance: APREPITANT
     Indication: Product used for unknown indication
     Dosage: UNK
     Route: 065
     Dates: start: 20200428, end: 20200430
  63. KCL [Concomitant]
     Active Substance: POTASSIUM CHLORIDE
     Indication: Product used for unknown indication
     Dosage: UNK
     Route: 065
     Dates: start: 20170429, end: 20190305
  64. KCL [Concomitant]
     Active Substance: POTASSIUM CHLORIDE
     Dosage: 600 MG
     Route: 048
     Dates: start: 20170429, end: 20190305
  65. OLEOVIT [Concomitant]
     Indication: Product used for unknown indication
     Dosage: UNK
     Route: 048
     Dates: start: 20170329, end: 20210615
  66. EDOXABAN TOSYLATE [Concomitant]
     Active Substance: EDOXABAN TOSYLATE
     Indication: Product used for unknown indication
     Dosage: UNK
     Route: 065
     Dates: start: 20191120, end: 20200608
  67. EDOXABAN TOSYLATE [Concomitant]
     Active Substance: EDOXABAN TOSYLATE
     Dosage: UNK
     Route: 065
     Dates: start: 20200613, end: 20210611
  68. EDOXABAN TOSYLATE [Concomitant]
     Active Substance: EDOXABAN TOSYLATE
     Dosage: UNK
     Route: 065
     Dates: start: 20191120, end: 20200608
  69. ACETAMINOPHEN [Concomitant]
     Active Substance: ACETAMINOPHEN
     Indication: Product used for unknown indication
     Dosage: UNK
     Route: 065
     Dates: start: 20200506
  70. ACETAMINOPHEN [Concomitant]
     Active Substance: ACETAMINOPHEN
     Dosage: UNK
     Route: 065
     Dates: start: 20210622, end: 20210622
  71. FENTANYL [Concomitant]
     Active Substance: FENTANYL\FENTANYL CITRATE
     Indication: Product used for unknown indication
     Dosage: UNK
     Route: 062
     Dates: start: 20200515
  72. PANTOPRAZOLE SODIUM [Concomitant]
     Active Substance: PANTOPRAZOLE SODIUM
     Indication: Gastrointestinal disorder
     Dosage: DAILY
     Route: 048
     Dates: start: 20170722, end: 20180327
  73. PANTOPRAZOLE SODIUM [Concomitant]
     Active Substance: PANTOPRAZOLE SODIUM
     Dosage: UNK
     Route: 065
     Dates: start: 20200506, end: 20200519
  74. PANTOPRAZOLE SODIUM [Concomitant]
     Active Substance: PANTOPRAZOLE SODIUM
     Dosage: UNK
     Route: 065
     Dates: start: 20210317, end: 20210607
  75. PANTOPRAZOLE SODIUM [Concomitant]
     Active Substance: PANTOPRAZOLE SODIUM
     Dosage: UNK
     Route: 065
     Dates: start: 20210608, end: 20210610
  76. PANTOPRAZOLE SODIUM [Concomitant]
     Active Substance: PANTOPRAZOLE SODIUM
     Dosage: UNK
     Route: 065
     Dates: start: 20210618, end: 20210623
  77. PANTOPRAZOLE SODIUM [Concomitant]
     Active Substance: PANTOPRAZOLE SODIUM
     Dosage: DAILY
     Route: 048
     Dates: start: 20170721
  78. LOVENOX [Concomitant]
     Active Substance: ENOXAPARIN SODIUM
     Indication: Product used for unknown indication
     Dosage: UNK
     Route: 065
     Dates: start: 20170224, end: 20171130
  79. LOVENOX [Concomitant]
     Active Substance: ENOXAPARIN SODIUM
     Route: 065
     Dates: start: 20170224, end: 20171130
  80. PREGABALIN [Concomitant]
     Active Substance: PREGABALIN
     Indication: Product used for unknown indication
     Dosage: UNK
     Route: 065
     Dates: start: 20190821, end: 20210616
  81. PREGABALIN [Concomitant]
     Active Substance: PREGABALIN
     Dosage: 25 MG
     Route: 048
     Dates: start: 20170428, end: 20180123
  82. LEVOFLOXACIN [Concomitant]
     Active Substance: LEVOFLOXACIN
     Indication: Product used for unknown indication
     Dosage: UNK
     Route: 065
     Dates: start: 20200506, end: 20200512
  83. EUTHYROX [Concomitant]
     Active Substance: LEVOTHYROXINE SODIUM
     Indication: Product used for unknown indication
     Dosage: UNK
     Route: 065
     Dates: start: 20170303, end: 20210615
  84. EUTHYROX [Concomitant]
     Active Substance: LEVOTHYROXINE SODIUM
     Dosage: 75 UG, QD
     Route: 048
     Dates: start: 20170303, end: 20210615
  85. NOVALGIN [Concomitant]
     Indication: Product used for unknown indication
     Dosage: UNK
     Route: 065
     Dates: start: 20210608, end: 20210612
  86. NOVALGIN [Concomitant]
     Dosage: UNK
     Route: 065
     Dates: start: 20210618, end: 20210618
  87. NOVALGIN [Concomitant]
     Dosage: 1 DOSAGE FORM
     Route: 048
     Dates: start: 20170329, end: 20180807
  88. XGEVA [Concomitant]
     Active Substance: DENOSUMAB
     Indication: Product used for unknown indication
     Dosage: UNK
     Route: 065
     Dates: start: 20170202, end: 20210521
  89. XGEVA [Concomitant]
     Active Substance: DENOSUMAB
     Dosage: 120 MG, QMO
     Route: 065
     Dates: start: 20170202, end: 20210521
  90. VITAMINS WITH MINERALS [Concomitant]
     Active Substance: MINERALS\VITAMINS
     Indication: Product used for unknown indication
     Dosage: UNK
     Route: 065
     Dates: start: 20170203, end: 20210612
  91. LYRICA [Concomitant]
     Active Substance: PREGABALIN
     Indication: Product used for unknown indication
     Dosage: UNK
     Route: 065
     Dates: start: 20190821
  92. DROPERIDOL [Concomitant]
     Active Substance: DROPERIDOL
     Indication: Gastrointestinal disorder
     Dosage: UNK
     Route: 065
     Dates: start: 20210612, end: 20210617
  93. DRONABINOL [Concomitant]
     Active Substance: DRONABINOL
     Indication: Product used for unknown indication
     Dosage: UNK
     Route: 065
     Dates: start: 20210608, end: 20210612
  94. DRONABINOL [Concomitant]
     Active Substance: DRONABINOL
     Dosage: UNK
     Route: 065
     Dates: start: 20170104, end: 20170106
  95. DRONABINOL [Concomitant]
     Active Substance: DRONABINOL
     Dosage: UNK
     Route: 065
     Dates: start: 20170107, end: 20170108
  96. PASPERTIN [Concomitant]
     Indication: Gastrointestinal disorder
     Dosage: UNK
     Route: 065
     Dates: start: 20200506
  97. PASPERTIN [Concomitant]
     Dosage: UNK
     Route: 065
     Dates: start: 20210608, end: 20210623
  98. LORAZEPAM [Concomitant]
     Active Substance: LORAZEPAM
     Indication: Product used for unknown indication
     Route: 065
  99. ZOFRAN [Concomitant]
     Active Substance: ONDANSETRON HYDROCHLORIDE
     Indication: Gastrointestinal disorder
     Dosage: UNK
     Route: 065
     Dates: start: 20200506
  100. ZOFRAN [Concomitant]
     Active Substance: ONDANSETRON HYDROCHLORIDE
     Dosage: UNK
     Route: 065
     Dates: start: 20210611, end: 20210616
  101. SCOTTOPECT [Concomitant]
     Indication: Cough
     Dosage: UNK
     Route: 065
     Dates: start: 20210611, end: 20210613
  102. MORPHINE [Concomitant]
     Active Substance: MORPHINE
     Indication: Dyspnoea
     Dosage: UNK
     Route: 065
     Dates: start: 20210521, end: 20210616
  103. MORPHINE [Concomitant]
     Active Substance: MORPHINE
     Dosage: UNK
     Route: 065
     Dates: start: 20210616, end: 20210623
  104. VITAMIN C [Concomitant]
     Active Substance: ASCORBIC ACID
     Indication: Gastrointestinal disorder
     Dosage: UNK
     Route: 065
     Dates: start: 20210611, end: 20210614
  105. ELOMEL [Concomitant]
     Indication: Product used for unknown indication
     Dosage: UNK
     Route: 065
  106. ALPRAZOLAM [Concomitant]
     Active Substance: ALPRAZOLAM
     Indication: Product used for unknown indication
     Dosage: UNK
     Route: 065
  107. ONDANSETRON [Concomitant]
     Active Substance: ONDANSETRON
     Indication: Product used for unknown indication
     Dosage: UNK
     Route: 065
  108. PARACODIN [Concomitant]
     Indication: Cough
     Dosage: UNK
     Route: 065
     Dates: start: 20210428, end: 20210615
  109. BUTYLSCOPOLAMINE BROMIDE [Concomitant]
     Active Substance: BUTYLSCOPOLAMINE BROMIDE
     Indication: Product used for unknown indication
     Dosage: UNK
     Route: 065
     Dates: start: 20210618, end: 20210618
  110. HALSET [Concomitant]
     Indication: Cough
     Dosage: UNK
     Route: 065
     Dates: start: 20210611, end: 20210615
  111. CARBOXYMETHYLCELLULOSE SODIUM [Concomitant]
     Active Substance: CARBOXYMETHYLCELLULOSE SODIUM
     Indication: Product used for unknown indication
     Dosage: UNK
     Route: 065
  112. PONVERIDOL [Concomitant]
     Indication: Gastrointestinal disorder
     Dosage: UNK
     Route: 065
     Dates: start: 20210618, end: 20210623
  113. POLYETHYLENE GLYCOL 3350\POTASSIUM CHLORIDE\SODIUM BICARBONATE\SODIUM [Concomitant]
     Active Substance: POLYETHYLENE GLYCOL 3350\POTASSIUM CHLORIDE\SODIUM BICARBONATE\SODIUM CHLORIDE
     Indication: Product used for unknown indication
     Dosage: UNK
     Route: 065
     Dates: start: 20210608, end: 20210616
  114. POLYETHYLENE GLYCOL 3350\POTASSIUM CHLORIDE\SODIUM BICARBONATE\SODIUM [Concomitant]
     Active Substance: POLYETHYLENE GLYCOL 3350\POTASSIUM CHLORIDE\SODIUM BICARBONATE\SODIUM CHLORIDE
     Dosage: UNK
     Route: 048
     Dates: start: 20170709, end: 20170709
  115. TEMESTA [Concomitant]
     Indication: Product used for unknown indication
     Dosage: UNK
     Route: 065
  116. HYDROMORPHONE HYDROCHLORIDE [Concomitant]
     Active Substance: HYDROMORPHONE HYDROCHLORIDE
     Indication: Product used for unknown indication
     Route: 065
     Dates: start: 20210611, end: 20210615
  117. LACTULOSE [Concomitant]
     Active Substance: LACTULOSE
     Indication: Product used for unknown indication
     Route: 065
  118. PEGFILGRASTIM [Concomitant]
     Active Substance: PEGFILGRASTIM
     Indication: Product used for unknown indication
     Dosage: UNK
     Route: 065
     Dates: start: 20210610, end: 20210610
  119. BETAMETHASONE DIPROPIONATE [Concomitant]
     Active Substance: BETAMETHASONE DIPROPIONATE
     Indication: Eczema
     Dosage: UNK, 0.5 QD
     Route: 065
     Dates: start: 20191122
  120. CEFEPIME [Concomitant]
     Active Substance: CEFEPIME HYDROCHLORIDE
     Indication: Product used for unknown indication
     Dosage: UNK
     Route: 065
  121. XICLAV [Concomitant]
     Indication: Product used for unknown indication
     Route: 048
     Dates: start: 20181218, end: 20181222
  122. AMOXICILLIN\CLAVULANATE POTASSIUM [Concomitant]
     Active Substance: AMOXICILLIN\CLAVULANATE POTASSIUM
     Indication: Product used for unknown indication
     Dosage: 1 G
     Route: 048
     Dates: start: 20170711, end: 20170713
  123. TRAZODONE HYDROCHLORIDE [Concomitant]
     Active Substance: TRAZODONE HYDROCHLORIDE
     Indication: Product used for unknown indication
     Dosage: UNK
     Route: 048
     Dates: start: 20190731, end: 20190910
  124. LIDOCAINE [Concomitant]
     Active Substance: LIDOCAINE
     Indication: Product used for unknown indication
     Route: 065
  125. HYALURONATE SODIUM [Concomitant]
     Active Substance: HYALURONATE SODIUM
     Indication: Product used for unknown indication
     Dosage: UNK
     Route: 065
  126. MOTRIM [Concomitant]
     Indication: Product used for unknown indication
     Dosage: 200 MG
     Route: 048
     Dates: start: 20190619, end: 20190623
  127. FILGRASTIM [Concomitant]
     Active Substance: FILGRASTIM
     Indication: Product used for unknown indication
     Route: 058
     Dates: start: 20170704, end: 20170708
  128. BETAMETHASONE DIPROPIONATE [Concomitant]
     Active Substance: BETAMETHASONE DIPROPIONATE
     Indication: Eczema
     Dosage: UNK
     Route: 065
     Dates: start: 20191122, end: 20191215

REACTIONS (19)
  - Pseudomonal sepsis [Recovered/Resolved]
  - Streptococcal sepsis [Recovered/Resolved]
  - Sepsis [Recovered/Resolved]
  - Vascular device infection [Recovered/Resolved]
  - Metastases to central nervous system [Not Recovered/Not Resolved]
  - Brain oedema [Not Recovered/Not Resolved]
  - Metastases to lymph nodes [Not Recovered/Not Resolved]
  - Pleural effusion [Recovered/Resolved]
  - Fatigue [Not Recovered/Not Resolved]
  - Back pain [Recovered/Resolved]
  - Nausea [Recovered/Resolved]
  - Vomiting [Recovered/Resolved]
  - C-reactive protein increased [Not Recovered/Not Resolved]
  - Candida infection [Not Recovered/Not Resolved]
  - Restlessness [Not Recovered/Not Resolved]
  - Paronychia [Recovered/Resolved]
  - Nasal mucosal disorder [Recovered/Resolved]
  - Skin fissures [Recovered/Resolved]
  - Eczema [Not Recovered/Not Resolved]

NARRATIVE: CASE EVENT DATE: 20170921
